FAERS Safety Report 14745517 (Version 3)
Quarter: 2018Q2

REPORT INFORMATION
  Report Type: Report from Study
  Country: US (occurrence: US)
  Receive Date: 20180411
  Receipt Date: 20180615
  Transmission Date: 20180711
  Serious: Yes (Hospitalization, Other)
  Sender: FDA-Public Use
  Company Number: US-GILEAD-2018-0331473

PATIENT
  Age: 65 Year
  Sex: Female

DRUGS (4)
  1. NAPROXEN                           /00256202/ [Concomitant]
     Active Substance: NAPROXEN SODIUM
  2. VOLTAREN [Concomitant]
     Active Substance: DICLOFENAC SODIUM
  3. OXYGEN. [Concomitant]
     Active Substance: OXYGEN
  4. AMBRISENTAN [Suspect]
     Active Substance: AMBRISENTAN
     Indication: PRODUCT USED FOR UNKNOWN INDICATION
     Dosage: 5 MG, QD
     Route: 065
     Dates: start: 20140501

REACTIONS (18)
  - Hepatic enzyme increased [Unknown]
  - Dizziness [Not Recovered/Not Resolved]
  - Sarcoidosis [Unknown]
  - Malaise [Unknown]
  - Speech disorder [Unknown]
  - Vomiting [Unknown]
  - Rash pruritic [Unknown]
  - Fatigue [Unknown]
  - Dyspnoea [Unknown]
  - Weight decreased [Not Recovered/Not Resolved]
  - Chromaturia [Unknown]
  - Dysphonia [Unknown]
  - Urine odour abnormal [Unknown]
  - Pain [Unknown]
  - Cough [Unknown]
  - Fluid retention [Not Recovered/Not Resolved]
  - Abdominal pain [Unknown]
  - Diarrhoea [Unknown]
